FAERS Safety Report 10935811 (Version 1)
Quarter: 2015Q1

REPORT INFORMATION
  Report Type: Spontaneous
  Country: US (occurrence: US)
  Receive Date: 20150320
  Receipt Date: 20150320
  Transmission Date: 20150721
  Serious: Yes (Hospitalization)
  Sender: FDA-Public Use
  Company Number: US-SHIRE-US201502231

PATIENT
  Age: 11 Month
  Sex: Male

DRUGS (1)
  1. VYVANSE [Suspect]
     Active Substance: LISDEXAMFETAMINE DIMESYLATE
     Indication: ACCIDENTAL EXPOSURE TO PRODUCT BY CHILD
     Dosage: UNK, UNKNOWN
     Route: 048
     Dates: start: 20141215, end: 20141215

REACTIONS (3)
  - Psychomotor hyperactivity [Unknown]
  - Accidental exposure to product by child [Unknown]
  - Agitation [Unknown]

NARRATIVE: CASE EVENT DATE: 20141215
